FAERS Safety Report 17016446 (Version 1)
Quarter: 2019Q4

REPORT INFORMATION
  Report Type: Spontaneous
  Country: US (occurrence: US)
  Receive Date: 20191004
  Receipt Date: 20191004
  Transmission Date: 20200122
  Serious: No
  Sender: FDA-Public Use
  Company Number: None

PATIENT
  Age: 35 Year
  Sex: Female

DRUGS (1)
  1. COPAXONE [Suspect]
     Active Substance: GLATIRAMER ACETATE
     Route: 058
     Dates: start: 201909

REACTIONS (7)
  - Musculoskeletal stiffness [None]
  - Nausea [None]
  - Back pain [None]
  - Pyrexia [None]
  - Chills [None]
  - Vomiting [None]
  - Neck pain [None]

NARRATIVE: CASE EVENT DATE: 20191001
